FAERS Safety Report 5145136-5 (Version None)
Quarter: 2006Q4

REPORT INFORMATION
  Report Type: 
  Country: None (occurrence: None)
  Receive Date: 20061107
  Receipt Date: 20061030
  Transmission Date: 20070319
  Serious: Yes (Other)
  Sender: FDA-Public Use
  Company Number: DE-ELI_LILLY_AND_COMPANY-DE200611000249

PATIENT
  Age: 29 Year
  Sex: Female

DRUGS (7)
  1. CIPRALEX/DEN/ [Concomitant]
     Dosage: 20 MG, DAILY (1/D)
     Route: 048
     Dates: start: 20060817
  2. ZYPREXA [Suspect]
     Indication: PSYCHOTIC DISORDER
     Dosage: 15 MG, DAILY (1/D)
     Route: 048
     Dates: start: 20060719
  3. ZYPREXA [Suspect]
     Dosage: 10 MG, DAILY (1/D)
     Route: 048
  4. ZYPREXA [Suspect]
     Dosage: 15 MG, DAILY (1/D)
     Route: 048
  5. TAVOR [Concomitant]
     Dosage: UNK MG, DAILY (1/D)
     Route: 048
  6. BROMOCRIPTINE MESYLATE [Concomitant]
     Route: 048
     Dates: end: 20060803
  7. FRISIUM [Concomitant]
     Dosage: 15 MG, DAILY (1/D)
     Route: 048
     Dates: start: 20060803

REACTIONS (1)
  - ELECTROENCEPHALOGRAM ABNORMAL [None]
